FAERS Safety Report 4428124-3 (Version None)
Quarter: 2004Q3

REPORT INFORMATION
  Report Type: 
  Country: None (occurrence: None)
  Receive Date: 20040726
  Receipt Date: 20040402
  Transmission Date: 20050211
  Serious: No
  Sender: FDA-Public Use
  Company Number: USA031254633

PATIENT
  Age: 84 Year
  Sex: Female
  Weight: 38 kg

DRUGS (2)
  1. FORTEO [Suspect]
     Indication: OSTEOPOROSIS
     Dates: start: 20031207, end: 20040330
  2. COUMADIN [Concomitant]

REACTIONS (5)
  - BONE PAIN [None]
  - FATIGUE [None]
  - FEELING ABNORMAL [None]
  - INJECTION SITE ERYTHEMA [None]
  - INJECTION SITE HAEMORRHAGE [None]
